FAERS Safety Report 7715664-4 (Version None)
Quarter: 2011Q3

REPORT INFORMATION
  Report Type: 
  Country: None (occurrence: None)
  Receive Date: 20110829
  Receipt Date: 20110823
  Transmission Date: 20111222
  Serious: Yes (Other)
  Sender: FDA-Public Use
  Company Number: BR-PFIZER INC-2011042912

PATIENT
  Age: 29 Year
  Sex: Female
  Weight: 53 kg

DRUGS (1)
  1. NORDETTE-21 [Suspect]
     Indication: CONTRACEPTION
     Dosage: [ETHINYL ESTRADIOL 0.03MG] / [LEVONORGESTREL 0.15MG] (ONE TABLET), ONCE DAILY
     Route: 048
     Dates: start: 20010101

REACTIONS (13)
  - HEADACHE [None]
  - FEELING ABNORMAL [None]
  - INCREASED APPETITE [None]
  - AMENORRHOEA [None]
  - UTERINE LEIOMYOMA [None]
  - ANXIETY [None]
  - WEIGHT INCREASED [None]
  - ABNORMAL WITHDRAWAL BLEEDING [None]
  - MENSTRUATION IRREGULAR [None]
  - METRORRHAGIA [None]
  - INAPPROPRIATE SCHEDULE OF DRUG ADMINISTRATION [None]
  - UTERINE DISORDER [None]
  - MALAISE [None]
